FAERS Safety Report 7573320-X (Version None)
Quarter: 2011Q2

REPORT INFORMATION
  Report Type: 
  Country: None (occurrence: None)
  Receive Date: 20110627
  Receipt Date: 20110615
  Transmission Date: 20111010
  Serious: No
  Sender: FDA-Public Use
  Company Number: PHHY2011US53162

PATIENT
  Sex: Female

DRUGS (9)
  1. LEXAPRO [Concomitant]
  2. PANTOPRAZOLE [Concomitant]
  3. ONDANSETRON [Concomitant]
  4. ESTRADIOL [Concomitant]
  5. AVALIDE [Concomitant]
  6. ASPIRIN [Concomitant]
  7. TASIGNA [Suspect]
  8. ATENOLOL [Concomitant]
  9. METFORMIN HCL [Concomitant]

REACTIONS (1)
  - NASOPHARYNGITIS [None]
